FAERS Safety Report 13635827 (Version 1)
Quarter: 2017Q2

REPORT INFORMATION
  Report Type: Spontaneous
  Country: US (occurrence: US)
  Receive Date: 20170531
  Receipt Date: 20170531
  Transmission Date: 20170830
  Serious: No
  Sender: FDA-Public Use
  Company Number: US-ASTELLAS-1744631

PATIENT
  Age: 67 Year
  Sex: Male

DRUGS (2)
  1. LOSARTAN POTASSIUM. [Concomitant]
     Active Substance: LOSARTAN POTASSIUM
  2. TARCEVA [Suspect]
     Active Substance: ERLOTINIB HYDROCHLORIDE
     Indication: LUNG NEOPLASM MALIGNANT
     Route: 048

REACTIONS (12)
  - Sinus disorder [Unknown]
  - Nasal discomfort [Unknown]
  - Pain [Unknown]
  - Erythema [Unknown]
  - Paraesthesia [Unknown]
  - Influenza like illness [Unknown]
  - Epigastric discomfort [Unknown]
  - Back pain [Unknown]
  - Discomfort [Unknown]
  - Abdominal discomfort [Unknown]
  - Rash [Unknown]
  - Fatigue [Unknown]
